FAERS Safety Report 12336170 (Version 2)
Quarter: 2016Q4

REPORT INFORMATION
  Report Type: Spontaneous
  Country: US (occurrence: US)
  Receive Date: 20160505
  Receipt Date: 20161123
  Transmission Date: 20170207
  Serious: No
  Sender: FDA-Public Use
  Company Number: US-PFIZER INC-2016236537

PATIENT
  Age: 78 Year
  Sex: Female
  Weight: 110.2 kg

DRUGS (17)
  1. SYNTHROID [Concomitant]
     Active Substance: LEVOTHYROXINE SODIUM
     Dosage: 88 UG, DAILY
     Dates: start: 20161111
  2. RESTORIL [Concomitant]
     Active Substance: TEMAZEPAM
     Dosage: 7.5 MG, 1X/DAY
     Route: 048
     Dates: start: 20151022
  3. ASPIRIN. [Concomitant]
     Active Substance: ASPIRIN
     Dosage: 81 MG, 1X/DAY
  4. ESTRACE [Concomitant]
     Active Substance: ESTRADIOL
     Dosage: UNK UNK, 2X/WEEK (0.1MG/GM CREAM)
     Route: 067
  5. PENLAC [Concomitant]
     Active Substance: CICLOPIROX
     Dosage: 8 %, 2X/DAY
     Dates: start: 20151022
  6. CYANOCOBALAMIN. [Concomitant]
     Active Substance: CYANOCOBALAMIN
     Dosage: 1000 UG/ML, MONTHLY
     Route: 051
     Dates: start: 20141013
  7. AMIODARONE HCL [Concomitant]
     Active Substance: AMIODARONE HYDROCHLORIDE
     Dosage: 100 MG, DAILY
     Route: 048
     Dates: start: 20151022
  8. CELEBREX [Suspect]
     Active Substance: CELECOXIB
     Indication: BACK PAIN
     Dosage: 200 MG, 1X/DAY
     Route: 048
     Dates: start: 20151022
  9. AMBIEN [Concomitant]
     Active Substance: ZOLPIDEM TARTRATE
     Indication: SLEEP DISORDER
     Dosage: 10 MG, 1X/DAY
     Route: 048
     Dates: start: 20150728
  10. LASIX [Concomitant]
     Active Substance: FUROSEMIDE
     Indication: OEDEMA
  11. SYNTHROID [Concomitant]
     Active Substance: LEVOTHYROXINE SODIUM
     Dosage: 88 UG, 1X/DAY
     Route: 048
     Dates: start: 20150826
  12. LASIX [Concomitant]
     Active Substance: FUROSEMIDE
     Indication: SWELLING
     Dosage: 20 MG, 1X/DAY (40 MG, 1/2 TABLET QAM AS NEEDED FOR SWELLING)
     Route: 048
     Dates: start: 20151022
  13. CELEBREX [Suspect]
     Active Substance: CELECOXIB
     Dosage: 200 MG, DAILY
     Route: 048
     Dates: start: 20161115
  14. AMBIEN [Concomitant]
     Active Substance: ZOLPIDEM TARTRATE
     Indication: ASTHENIA
     Dosage: 10 MG, AS NEEDED (1 TABLET QHS PRN SLEEP)
     Dates: start: 20160419
  15. KLOR-CON M20 [Concomitant]
     Active Substance: POTASSIUM CHLORIDE
     Dosage: 20 MEQ, 1X/DAY
     Route: 048
     Dates: start: 20141006
  16. TRAMADOL HCL [Concomitant]
     Active Substance: TRAMADOL HYDROCHLORIDE
     Dosage: 50 MG, AS NEEDED
     Route: 048
     Dates: start: 20151022
  17. ATIVAN [Concomitant]
     Active Substance: LORAZEPAM
     Indication: ANXIETY
     Dosage: UNK UNK, AS NEEDED (1/2 TO 1 TABLET BID PRN ANXIETY)
     Dates: start: 20161019

REACTIONS (10)
  - Oedema [Unknown]
  - Feeling abnormal [Unknown]
  - Weight increased [Unknown]
  - Arthralgia [Unknown]
  - Peripheral swelling [Unknown]
  - Skin lesion [Unknown]
  - Paraesthesia [Unknown]
  - Joint stiffness [Unknown]
  - Fatigue [Unknown]
  - Burning sensation [Unknown]
